FAERS Safety Report 4723982-7 (Version None)
Quarter: 2005Q3

REPORT INFORMATION
  Report Type: 
  Country: None (occurrence: None)
  Receive Date: 20050721
  Receipt Date: 20050707
  Transmission Date: 20060218
  Serious: Yes (Hospitalization)
  Sender: FDA-Public Use
  Company Number: RENA-11436

PATIENT
  Age: 67 Year
  Sex: Female
  Weight: 70.7611 kg

DRUGS (12)
  1. RENAGEL [Suspect]
     Indication: HYPERPHOSPHATAEMIA
     Dosage: 3.2 G TID PO
     Route: 048
     Dates: start: 20050605
  2. RENAGEL [Suspect]
     Indication: HYPERPHOSPHATAEMIA
  3. NORVASC [Concomitant]
  4. ASPIRIN [Concomitant]
  5. ATENOLOL [Concomitant]
  6. COLACE [Concomitant]
  7. FOLIC ACID [Concomitant]
  8. NEURONTIN [Concomitant]
  9. REGLAN [Concomitant]
  10. CRITIC AID TOPICAL PASTE [Concomitant]
  11. HUMULIN [Concomitant]
  12. IRON [Concomitant]

REACTIONS (20)
  - ABDOMINAL DISTENSION [None]
  - ABDOMINAL PAIN [None]
  - ABNORMAL FAECES [None]
  - ANORECTAL DISORDER [None]
  - ANOREXIA [None]
  - AORTIC ANEURYSM [None]
  - CHEST PAIN [None]
  - CONSTIPATION [None]
  - FAECAL INCONTINENCE [None]
  - FAECALOMA [None]
  - FEELING ABNORMAL [None]
  - INTESTINAL DILATATION [None]
  - MITRAL VALVE CALCIFICATION [None]
  - NAUSEA [None]
  - OCCULT BLOOD POSITIVE [None]
  - PROCTALGIA [None]
  - PYREXIA [None]
  - RETCHING [None]
  - THIRST [None]
  - VOMITING [None]
